FAERS Safety Report 5522514-3 (Version None)
Quarter: 2007Q4

REPORT INFORMATION
  Report Type: 
  Country: None (occurrence: None)
  Receive Date: 20071120
  Receipt Date: 20071109
  Transmission Date: 20080405
  Serious: Yes (Hospitalization)
  Sender: FDA-Public Use
  Company Number: MX-PFIZER INC-2007081395

PATIENT
  Sex: Male
  Weight: 122 kg

DRUGS (5)
  1. SU-011,248 [Suspect]
     Indication: RENAL CELL CARCINOMA STAGE UNSPECIFIED
     Route: 048
  2. ALL OTHER THERAPEUTIC PRODUCTS [Concomitant]
     Route: 048
     Dates: start: 20070817, end: 20070903
  3. PREGABALIN [Concomitant]
     Route: 048
     Dates: start: 20070827
  4. TRAMADOL HCL [Concomitant]
     Route: 048
     Dates: start: 20070903
  5. DICLOFENAC SODIUM [Concomitant]
     Route: 042
     Dates: start: 20070903, end: 20070904

REACTIONS (1)
  - PERIPHERAL SENSORY NEUROPATHY [None]
